FAERS Safety Report 22074373 (Version 1)
Quarter: 2023Q1

REPORT INFORMATION
  Report Type: Spontaneous
  Country: US (occurrence: None)
  Receive Date: 20230308
  Receipt Date: 20230308
  Transmission Date: 20230418
  Serious: No
  Sender: FDA-Public Use
  Company Number: 2023A052182

PATIENT
  Sex: Female

DRUGS (1)
  1. BREZTRI [Suspect]
     Active Substance: BUDESONIDE\FORMOTEROL\GLYCOPYRROLATE
     Indication: Chronic obstructive pulmonary disease
     Dosage: 2 PUFFS TWICE DAY, MORNING AND EVENING, STARTING A YEAR AGO320UG/INHAL TWO TIMES A DAY
     Route: 055

REACTIONS (3)
  - Dyspnoea [Unknown]
  - Wrong technique in device usage process [Unknown]
  - Device use issue [Unknown]
